FAERS Safety Report 6186300-6 (Version None)
Quarter: 2009Q2

REPORT INFORMATION
  Report Type: 
  Country: None (occurrence: None)
  Receive Date: 20090507
  Receipt Date: 20090507
  Transmission Date: 20091009
  Serious: Yes (Other)
  Sender: FDA-Public Use
  Company Number: None

PATIENT
  Age: 35 Year
  Sex: Female
  Weight: 95.709 kg

DRUGS (1)
  1. MIRCETTE [Suspect]
     Indication: CONTRACEPTION
     Dosage: 28 PILLS DAILY PO
     Route: 048
     Dates: start: 20050428, end: 20070723

REACTIONS (2)
  - HEMIPLEGIA [None]
  - VENOUS THROMBOSIS [None]
